FAERS Safety Report 13703506 (Version 1)
Quarter: 2017Q2

REPORT INFORMATION
  Report Type: Spontaneous
  Country: FR (occurrence: FR)
  Receive Date: 20170629
  Receipt Date: 20170629
  Transmission Date: 20170830
  Serious: Yes (Life-Threatening)
  Sender: FDA-Public Use
  Company Number: FR-FRESENIUS KABI-FK201705476

PATIENT
  Age: 2 Year
  Sex: Male
  Weight: 11 kg

DRUGS (2)
  1. CARBOPLATIN INJECTION 10MG/ML [Suspect]
     Active Substance: CARBOPLATIN
     Indication: CHOROID PLEXUS CARCINOMA
     Route: 042
     Dates: start: 20170223, end: 20170225
  2. THIOTEPA. [Suspect]
     Active Substance: THIOTEPA
     Indication: CHOROID PLEXUS CARCINOMA
     Route: 042
     Dates: start: 20170226, end: 20170228

REACTIONS (16)
  - Platelet count decreased [Recovering/Resolving]
  - Aplasia [Recovered/Resolved]
  - Prothrombin time ratio decreased [Recovering/Resolving]
  - Oliguria [Recovering/Resolving]
  - Irritability [Recovering/Resolving]
  - Hyperlactacidaemia [Recovering/Resolving]
  - Pyrexia [Recovered/Resolved]
  - Hepatocellular injury [Recovered/Resolved]
  - Hepatic pain [Recovering/Resolving]
  - Hyperaesthesia [Recovering/Resolving]
  - Mucosal inflammation [Recovered/Resolved]
  - Decreased appetite [Recovered/Resolved]
  - Ascites [Recovering/Resolving]
  - Somnolence [Recovering/Resolving]
  - Tachypnoea [Recovering/Resolving]
  - Pleural effusion [Recovering/Resolving]

NARRATIVE: CASE EVENT DATE: 20170303
